FAERS Safety Report 18004748 (Version 2)
Quarter: 2021Q2

REPORT INFORMATION
  Report Type: Spontaneous
  Country: US (occurrence: US)
  Receive Date: 20200710
  Receipt Date: 20210614
  Transmission Date: 20210717
  Serious: Yes (Hospitalization, Other)
  Sender: FDA-Public Use
  Company Number: US-009507513-2007USA003341

PATIENT
  Age: 78 Year
  Sex: Male

DRUGS (3)
  1. PADCEV [Suspect]
     Active Substance: ENFORTUMAB VEDOTIN-EJFV
     Indication: PRODUCT USED FOR UNKNOWN INDICATION
     Dosage: UNK
     Route: 065
  2. KEYTRUDA [Suspect]
     Active Substance: PEMBROLIZUMAB
     Indication: PRODUCT USED FOR UNKNOWN INDICATION
     Dosage: UNK
     Route: 065
  3. PADCEV [Suspect]
     Active Substance: ENFORTUMAB VEDOTIN-EJFV
     Dosage: UNK (AT REDUCED DOSE)
     Route: 065

REACTIONS (7)
  - Clostridium difficile colitis [Unknown]
  - Transaminases increased [Unknown]
  - Pyrexia [Not Recovered/Not Resolved]
  - Rash pruritic [Unknown]
  - Dermatitis bullous [Recovering/Resolving]
  - Immune-mediated enterocolitis [Unknown]
  - Rash erythematous [Unknown]
